FAERS Safety Report 6896959-3 (Version None)
Quarter: 2010Q3

REPORT INFORMATION
  Report Type: 
  Country: None (occurrence: None)
  Receive Date: 20100802
  Receipt Date: 20070306
  Transmission Date: 20110219
  Serious: No
  Sender: FDA-Public Use
  Company Number: US-PFIZER INC-2007018111

PATIENT
  Sex: Female

DRUGS (3)
  1. LYRICA [Suspect]
  2. CELEBREX [Concomitant]
  3. ROBAXIN [Concomitant]

REACTIONS (3)
  - INFLUENZA LIKE ILLNESS [None]
  - MALAISE [None]
  - MENOPAUSAL SYMPTOMS [None]
